FAERS Safety Report 5477972-X (Version None)
Quarter: 2007Q4

REPORT INFORMATION
  Report Type: 
  Country: None (occurrence: None)
  Receive Date: 20071005
  Receipt Date: 20070925
  Transmission Date: 20080405
  Serious: Yes (Hospitalization, Other)
  Sender: FDA-Public Use
  Company Number: US-JNJFOC-20070806571

PATIENT
  Sex: Female

DRUGS (11)
  1. REMICADE [Suspect]
     Indication: RHEUMATOID ARTHRITIS
     Route: 042
  2. KLOR-CON [Concomitant]
     Dosage: TAKE AS NEEDED WITH LASIX
     Route: 048
  3. MTX [Concomitant]
  4. LEVOTHYROXINE SODIUM [Concomitant]
     Dosage: 25 MCG DAILY
     Route: 048
  5. MEDROL [Concomitant]
     Route: 048
  6. ASPIRIN [Concomitant]
     Route: 048
  7. CALCIUM [Concomitant]
     Dosage: DAILY
     Route: 048
  8. METOPROLOL TARTRATE [Concomitant]
     Route: 048
  9. SIMVASTATIN [Concomitant]
     Route: 048
  10. LASIX [Concomitant]
     Indication: OEDEMA PERIPHERAL
  11. VITAMIN K [Concomitant]
     Route: 048

REACTIONS (2)
  - SMALL CELL LUNG CANCER STAGE UNSPECIFIED [None]
  - SUPERIOR VENA CAVAL OCCLUSION [None]
